FAERS Safety Report 7744166-4 (Version None)
Quarter: 2011Q3

REPORT INFORMATION
  Report Type: 
  Country: None (occurrence: None)
  Receive Date: 20110912
  Receipt Date: 20110907
  Transmission Date: 20111222
  Serious: No
  Sender: FDA-Public Use
  Company Number: US-PFIZER INC-2011178504

PATIENT
  Age: 48 Year
  Sex: Male

DRUGS (3)
  1. COVERA-HS [Suspect]
     Indication: HYPERTROPHIC CARDIOMYOPATHY
     Dosage: UNK
     Dates: start: 19970101
  2. SEROQUEL [Concomitant]
     Indication: INSOMNIA
     Dosage: UNK
     Route: 048
     Dates: start: 20040101
  3. COVERA-HS [Suspect]
     Indication: MARFAN'S SYNDROME

REACTIONS (1)
  - SUPRAVENTRICULAR EXTRASYSTOLES [None]
